FAERS Safety Report 16177356 (Version 1)
Quarter: 2019Q2

REPORT INFORMATION
  Report Type: Spontaneous
  Country: IT (occurrence: IT)
  Receive Date: 20190410
  Receipt Date: 20190410
  Transmission Date: 20190711
  Serious: Yes (Other)
  Sender: FDA-Public Use
  Company Number: IT-ACCORD-119460

PATIENT
  Age: 88 Year
  Sex: Female

DRUGS (8)
  1. METFORAL [Concomitant]
     Active Substance: METFORMIN HYDROCHLORIDE
  2. CLOPIDOGREL [Suspect]
     Active Substance: CLOPIDOGREL BISULFATE
     Indication: ISCHAEMIC HEART DISEASE PROPHYLAXIS
     Dosage: DATE OF LAST ADMINISTRATION: 26-JUL-2018
     Route: 048
     Dates: start: 20180101
  3. LANSOPRAZOLE. [Concomitant]
     Active Substance: LANSOPRAZOLE
  4. TRIATEC [Concomitant]
  5. SINEMET [Concomitant]
     Active Substance: CARBIDOPA\LEVODOPA
  6. TORVAST [Concomitant]
     Active Substance: ATORVASTATIN
  7. CARDIOASPIRIN [Suspect]
     Active Substance: ASPIRIN
     Indication: THROMBOSIS PROPHYLAXIS
     Dosage: DATE OF LAST ADMINISTRATION: 26-JUL-2018
     Route: 048
     Dates: start: 20180101
  8. RANEXA [Concomitant]
     Active Substance: RANOLAZINE

REACTIONS (1)
  - Genital haemorrhage [Recovering/Resolving]

NARRATIVE: CASE EVENT DATE: 20180726
